FAERS Safety Report 16110308 (Version 1)
Quarter: 2019Q1

REPORT INFORMATION
  Report Type: Spontaneous
  Country: BR (occurrence: BR)
  Receive Date: 20190325
  Receipt Date: 20190325
  Transmission Date: 20190418
  Serious: Yes (Other)
  Sender: FDA-Public Use
  Company Number: BR-GLAXOSMITHKLINE-BR2019GSK008720

PATIENT
  Sex: Female
  Weight: 46 kg

DRUGS (1)
  1. NUCALA [Suspect]
     Active Substance: MEPOLIZUMAB
     Indication: ASTHMA
     Dosage: UNK
     Dates: start: 20181204

REACTIONS (4)
  - Product availability issue [Unknown]
  - Product dose omission [Not Recovered/Not Resolved]
  - Spinal fracture [Unknown]
  - Wheezing [Unknown]
